FAERS Safety Report 21860332 (Version 1)
Quarter: 2023Q1

REPORT INFORMATION
  Report Type: Spontaneous
  Country: US (occurrence: US)
  Receive Date: 20230113
  Receipt Date: 20230113
  Transmission Date: 20230418
  Serious: No
  Sender: FDA-Public Use
  Company Number: US-BAYER-2023P001688

PATIENT
  Sex: Female

DRUGS (1)
  1. ESTRADIOL [Suspect]
     Active Substance: ESTRADIOL
     Dosage: 0.1MG/1D
     Dates: start: 20221209

REACTIONS (3)
  - Hyperhidrosis [Recovered/Resolved]
  - Gait inability [Recovered/Resolved]
  - Product physical issue [None]
